FAERS Safety Report 11335531 (Version 1)
Quarter: 2015Q3

REPORT INFORMATION
  Report Type: Spontaneous
  Country: US (occurrence: US)
  Receive Date: 20150804
  Receipt Date: 20150804
  Transmission Date: 20151125
  Serious: No
  Sender: FDA-Public Use
  Company Number: US-JNJFOC-20150800986

PATIENT
  Sex: Female

DRUGS (7)
  1. DURAGESIC [Suspect]
     Active Substance: FENTANYL
     Indication: ARTHRALGIA
     Route: 062
  2. OMEPRAZOLE. [Concomitant]
     Active Substance: OMEPRAZOLE
     Route: 065
     Dates: start: 2007
  3. METOPROLOL [Concomitant]
     Active Substance: METOPROLOL
     Indication: HYPERTENSION
     Route: 065
     Dates: start: 2013
  4. DURAGESIC [Suspect]
     Active Substance: FENTANYL
     Indication: ARTHRALGIA
     Route: 062
  5. POTASSIUM [Concomitant]
     Active Substance: POTASSIUM
     Indication: MINERAL SUPPLEMENTATION
     Dosage: 1 PACKET DAILY
     Route: 065
     Dates: start: 20150720
  6. CYMBALTA [Concomitant]
     Active Substance: DULOXETINE HYDROCHLORIDE
     Indication: DEPRESSION
     Route: 065
     Dates: start: 2009
  7. VITAMIN D [Concomitant]
     Active Substance: CHOLECALCIFEROL
     Indication: VITAMIN SUPPLEMENTATION
     Route: 065
     Dates: start: 2011

REACTIONS (6)
  - Product quality issue [Unknown]
  - Wrong technique in product usage process [Not Recovered/Not Resolved]
  - Product quality issue [Not Recovered/Not Resolved]
  - Wrong technique in product usage process [Unknown]
  - Drug dose omission [Recovered/Resolved]
  - Migraine [Unknown]
